FAERS Safety Report 8120205-6 (Version None)
Quarter: 2012Q1

REPORT INFORMATION
  Report Type: 
  Country: None (occurrence: None)
  Receive Date: 20120207
  Receipt Date: 20120202
  Transmission Date: 20120608
  Serious: Yes (Other)
  Sender: FDA-Public Use
  Company Number: PHHY2011AT098147

PATIENT
  Age: 74 Year
  Sex: Male
  Weight: 65 kg

DRUGS (2)
  1. ZOMETA [Suspect]
     Dosage: 4 MG, UNK
     Dates: start: 20111025
  2. ZOMETA [Suspect]
     Indication: METASTASES TO SPINE
     Dosage: 4 MG, UNK
     Dates: start: 20101126

REACTIONS (1)
  - PHLEBITIS [None]
